FAERS Safety Report 18514278 (Version 1)
Quarter: 2020Q4

REPORT INFORMATION
  Report Type: Spontaneous
  Country: US (occurrence: US)
  Receive Date: 20201117
  Receipt Date: 20201117
  Transmission Date: 20210114
  Serious: No
  Sender: FDA-Public Use
  Company Number: US-NALPROPION PHARMACEUTICALS INC.-2019-009269

PATIENT
  Age: 44 Year
  Sex: Female
  Weight: 87.53 kg

DRUGS (5)
  1. PROAIR HFA [Concomitant]
     Active Substance: ALBUTEROL SULFATE
     Indication: ASTHMA
     Dosage: INHALER AS NEEDED (NOT WHILE ON CONTRAVE)
     Route: 055
  2. CONTRAVE [Suspect]
     Active Substance: BUPROPION HYDROCHLORIDE\NALTREXONE HYDROCHLORIDE
     Indication: WEIGHT CONTROL
     Dosage: 2 TABLETS IN THE EVENING
     Route: 065
     Dates: start: 20191209, end: 20191210
  3. CONTRAVE [Suspect]
     Active Substance: BUPROPION HYDROCHLORIDE\NALTREXONE HYDROCHLORIDE
     Dosage: 2 TABLET IN THE MORNING
     Route: 065
     Dates: start: 20191210, end: 20191210
  4. WELLBUTRIN [Suspect]
     Active Substance: BUPROPION HYDROCHLORIDE
     Indication: ANXIETY
     Dosage: 1 TAB, BID
     Route: 048
     Dates: start: 201909
  5. WELLBUTRIN [Suspect]
     Active Substance: BUPROPION HYDROCHLORIDE
     Indication: DEPRESSION

REACTIONS (6)
  - Dizziness [Unknown]
  - Drug titration error [Unknown]
  - Cold sweat [Recovered/Resolved]
  - Taste disorder [Not Recovered/Not Resolved]
  - Nausea [Unknown]
  - Contraindicated product administered [Unknown]

NARRATIVE: CASE EVENT DATE: 20191009
